FAERS Safety Report 8340215-3 (Version None)
Quarter: 2012Q2

REPORT INFORMATION
  Report Type: 
  Country: None (occurrence: None)
  Receive Date: 20120507
  Receipt Date: 20120507
  Transmission Date: 20120825
  Serious: Yes (Hospitalization)
  Sender: FDA-Public Use
  Company Number: GB-PFIZER INC-2012102033

PATIENT
  Age: 65 Year
  Sex: Female

DRUGS (11)
  1. CALCIUM W/COLECALCIFEROL [Concomitant]
     Dosage: 1DF 2X DAY, 1.5G/400UNIT
  2. GLICLAZIDE [Concomitant]
     Dosage: 40 MG,  HALF PER DAY
  3. VENTOLIN [Concomitant]
     Route: 055
  4. AMLODIPINE BESYLATE [Suspect]
     Indication: HYPERTENSION
     Dosage: 5 MG, 1X/DAY LONGTERM IN THE MORNING
     Route: 048
  5. OMEPRAZOLE [Concomitant]
     Dosage: 20 MG, 1X/DAY
  6. CALOGEN [Concomitant]
     Dosage: 30 ML, 3X/DAY
  7. ACETYLSALICYLIC ACID [Concomitant]
     Dosage: 75 MG, 1X/DAY
  8. RAMIPRIL [Suspect]
     Indication: HYPERTENSION
     Dosage: 10 MG, 1X/DAY LONGTERM, IN THE MORNING
     Route: 048
  9. ENSURE PLUS [Concomitant]
  10. GAVISCON [Concomitant]
     Dosage: 1 DF 5-10MLS FOUR TIMES DAILY
     Route: 048
  11. ATORVASTATIN CALCIUM [Concomitant]
     Dosage: 60MG ONCE PER DAY, 20MG AND 40MG

REACTIONS (3)
  - HYPOTENSION [None]
  - JOINT SWELLING [None]
  - FALL [None]
